FAERS Safety Report 8890668 (Version 1)
Quarter: 2012Q4

REPORT INFORMATION
  Report Type: 
  Country: US (occurrence: US)
  Receive Date: 20121107
  Receipt Date: 20121107
  Transmission Date: 20130627
  Serious: No
  Sender: FDA-Public Use
  Company Number: US-PFIZER INC-2012276957

PATIENT
  Age: 71 Year
  Sex: Male
  Weight: 104.31 kg

DRUGS (3)
  1. LYRICA [Suspect]
     Indication: NEUROPATHY PERIPHERAL
     Dosage: UNK
     Route: 048
  2. AMITRIPTYLINE [Concomitant]
     Dosage: UNK
  3. VASOTEC [Concomitant]
     Dosage: UNK

REACTIONS (1)
  - Joint swelling [Unknown]
